FAERS Safety Report 6944436-3 (Version None)
Quarter: 2010Q3

REPORT INFORMATION
  Report Type: 
  Country: None (occurrence: None)
  Receive Date: 20100825
  Receipt Date: 20100825
  Transmission Date: 20110219
  Serious: No
  Sender: FDA-Public Use
  Company Number: None

PATIENT
  Sex: Female
  Weight: 110.5 kg

DRUGS (4)
  1. PREDNISONE [Suspect]
     Dosage: 560 MG
     Dates: end: 20100816
  2. CYTARABINE [Suspect]
     Dosage: 70 MG
     Dates: end: 20100813
  3. DAUNORUBICIN HCL [Suspect]
     Dosage: 57 MG
     Dates: end: 20100813
  4. PEG-L-ASPARAGINASE (PEGASPARGASE, ONCOSPAR) [Suspect]
     Dosage: 5650 IU
     Dates: end: 20100816

REACTIONS (1)
  - HYPERGLYCAEMIA [None]
